FAERS Safety Report 9493624 (Version 1)
Quarter: 2013Q3

REPORT INFORMATION
  Report Type: Spontaneous
  Country: BR (occurrence: BR)
  Receive Date: 20130902
  Receipt Date: 20130902
  Transmission Date: 20140515
  Serious: Yes (Hospitalization)
  Sender: FDA-Public Use
  Company Number: BR-JNJFOC-20130815857

PATIENT
  Age: 50 Year
  Sex: Female
  Weight: 38.5 kg

DRUGS (4)
  1. REMICADE [Suspect]
     Indication: CROHN^S DISEASE
     Route: 042
     Dates: start: 201201
  2. CLOMIPRAMINE [Concomitant]
     Indication: DEPRESSION
     Route: 065
  3. CARBOLITIUM [Concomitant]
     Indication: DEPRESSION
     Route: 065
  4. BROMAZEPAM [Concomitant]
     Indication: SEDATIVE THERAPY
     Route: 065

REACTIONS (2)
  - Vomiting [Unknown]
  - Crohn^s disease [Unknown]
